FAERS Safety Report 17741398 (Version 3)
Quarter: 2020Q4

REPORT INFORMATION
  Report Type: Spontaneous
  Country: US (occurrence: US)
  Receive Date: 20200504
  Receipt Date: 20201126
  Transmission Date: 20210113
  Serious: Yes (Hospitalization, Other)
  Sender: FDA-Public Use
  Company Number: US-SA-2020SA114783

PATIENT

DRUGS (26)
  1. DUPIXENT [Suspect]
     Active Substance: DUPILUMAB
     Indication: MIGRAINE WITHOUT AURA
     Dosage: 300 MG, QOW
     Route: 058
     Dates: start: 20200324
  2. DUPIXENT [Suspect]
     Active Substance: DUPILUMAB
     Indication: DERMATITIS ALLERGIC
  3. ASPIRIN [ACETYLSALICYLIC ACID] [Concomitant]
     Active Substance: ASPIRIN
  4. CRESTOR [Concomitant]
     Active Substance: ROSUVASTATIN CALCIUM
  5. MONTELUKAST [Concomitant]
     Active Substance: MONTELUKAST SODIUM
  6. CYMBALTA [Concomitant]
     Active Substance: DULOXETINE HYDROCHLORIDE
  7. OXYBUTYNIN. [Concomitant]
     Active Substance: OXYBUTYNIN CHLORIDE
  8. PLAQUENIL [Concomitant]
     Active Substance: HYDROXYCHLOROQUINE SULFATE
  9. RESTASIS [Concomitant]
     Active Substance: CYCLOSPORINE
  10. SPIRONOLACTON [Concomitant]
     Active Substance: SPIRONOLACTONE
  11. LORAZEPAM. [Concomitant]
     Active Substance: LORAZEPAM
  12. PILOCARPINE. [Concomitant]
     Active Substance: PILOCARPINE
  13. SYMBICORT [Concomitant]
     Active Substance: BUDESONIDE\FORMOTEROL FUMARATE DIHYDRATE
  14. PROLIA [Concomitant]
     Active Substance: DENOSUMAB
  15. VITAMIN B12 [Concomitant]
     Active Substance: CYANOCOBALAMIN
  16. MAGNESIUM [Concomitant]
     Active Substance: MAGNESIUM
  17. NEXIUM I.V. [Concomitant]
     Active Substance: ESOMEPRAZOLE SODIUM
  18. PRIMROSE OIL [Concomitant]
  19. PROBIOTIC [BIFIDOBACTERIUM LACTIS] [Concomitant]
     Active Substance: BIFIDOBACTERIUM ANIMALIS LACTIS
  20. CALCIUM [Concomitant]
     Active Substance: CALCIUM
  21. HYDROCHLOROTH [Concomitant]
     Active Substance: HYDROCHLOROTHIAZIDE
  22. POTASSIUM [Concomitant]
     Active Substance: POTASSIUM
  23. VERAPAMIL [Concomitant]
     Active Substance: VERAPAMIL HYDROCHLORIDE
  24. DEPLIN [Concomitant]
     Active Substance: LEVOMEFOLATE CALCIUM
  25. TEMAZEPAM. [Concomitant]
     Active Substance: TEMAZEPAM
  26. VITAMIN B-6 [Concomitant]
     Active Substance: PYRIDOXINE

REACTIONS (8)
  - Fall [Not Recovered/Not Resolved]
  - Rash [Not Recovered/Not Resolved]
  - Pneumothorax [Not Recovered/Not Resolved]
  - Pruritus [Not Recovered/Not Resolved]
  - Product use in unapproved indication [Unknown]
  - Product dose omission issue [Unknown]
  - Traumatic fracture [Not Recovered/Not Resolved]
  - Bone operation [Not Recovered/Not Resolved]

NARRATIVE: CASE EVENT DATE: 2020
